FAERS Safety Report 23930541 (Version 1)
Quarter: 2024Q2

REPORT INFORMATION
  Report Type: Spontaneous
  Country: ES (occurrence: ES)
  Receive Date: 20240603
  Receipt Date: 20240603
  Transmission Date: 20240716
  Serious: Yes (Hospitalization)
  Sender: FDA-Public Use
  Company Number: ES-JNJFOC-20240601930

PATIENT
  Age: 74 Year
  Sex: Male

DRUGS (1)
  1. YONDELIS [Suspect]
     Active Substance: TRABECTEDIN
     Indication: Myxofibrosarcoma
     Dosage: 1.95 MILLIGRAMS EVERY 21 DAYS INTRAVENOUSLY AS A 3-HOUR INFUSION
     Route: 042
     Dates: start: 20240229, end: 20240229

REACTIONS (1)
  - Acute myocardial infarction [Unknown]

NARRATIVE: CASE EVENT DATE: 20240307
